FAERS Safety Report 13020309 (Version 1)
Quarter: 2016Q4

REPORT INFORMATION
  Report Type: Spontaneous
  Country: PT (occurrence: PT)
  Receive Date: 20161212
  Receipt Date: 20161212
  Transmission Date: 20170207
  Serious: Yes (Hospitalization, Other)
  Sender: FDA-Public Use
  Company Number: PT-TEVA-717944ISR

PATIENT
  Age: 38 Year
  Sex: Male

DRUGS (4)
  1. CARBAMAZEPINE. [Suspect]
     Active Substance: CARBAMAZEPINE
     Indication: PSYCHOTIC DISORDER
     Dosage: 400 MILLIGRAM DAILY;
     Route: 065
  2. MELPERONE [Suspect]
     Active Substance: MELPERONE
     Indication: PSYCHOTIC DISORDER
     Dosage: 25 MILLIGRAM DAILY;
     Route: 065
  3. OLANZAPINE. [Suspect]
     Active Substance: OLANZAPINE
     Indication: PSYCHOTIC DISORDER
     Dosage: 15 MILLIGRAM DAILY;
     Route: 065
  4. BIPERIDEN [Concomitant]
     Active Substance: BIPERIDEN
     Route: 065

REACTIONS (10)
  - Pyrexia [Recovered/Resolved]
  - Proctalgia [Recovered/Resolved]
  - Gastrointestinal necrosis [Recovered/Resolved]
  - Condition aggravated [Recovered/Resolved]
  - Secretion discharge [Recovered/Resolved]
  - Inflammatory bowel disease [Recovered/Resolved]
  - Rectal tenesmus [Recovered/Resolved]
  - Constipation [Recovered/Resolved]
  - Abdominal pain [Recovered/Resolved]
  - Colitis ischaemic [Recovered/Resolved]
